FAERS Safety Report 24164982 (Version 1)
Quarter: 2024Q3

REPORT INFORMATION
  Report Type: Spontaneous
  Country: JP (occurrence: JP)
  Receive Date: 20240802
  Receipt Date: 20240802
  Transmission Date: 20241017
  Serious: Yes (Death, Life-Threatening, Hospitalization)
  Sender: Steriscience PTE
  Company Number: JP-STERISCIENCE B.V.-2024-ST-001126

PATIENT
  Age: 95 Year
  Sex: Male
  Weight: 60.3 kg

DRUGS (5)
  1. VANCOMYCIN [Suspect]
     Active Substance: VANCOMYCIN
     Indication: Antibiotic therapy
     Dosage: UNK
     Route: 065
  2. MEROPENEM [Suspect]
     Active Substance: MEROPENEM
     Indication: Antibiotic therapy
     Dosage: UNK, ON DAY 3
     Route: 065
  3. CEFTRIAXONE [Concomitant]
     Active Substance: CEFTRIAXONE\CEFTRIAXONE SODIUM
     Indication: Antibiotic therapy
     Dosage: UNK
     Route: 065
  4. OXYGEN [Concomitant]
     Active Substance: OXYGEN
     Indication: Oxygen therapy
     Dosage: 8 LITER, QMINUTE
     Route: 065
  5. OXYGEN [Concomitant]
     Active Substance: OXYGEN
     Dosage: DECREASE IN OXYGEN REQUIREMENT
     Route: 065

REACTIONS (2)
  - Drug ineffective [Fatal]
  - Condition aggravated [Unknown]
